FAERS Safety Report 17564796 (Version 1)
Quarter: 2020Q1

REPORT INFORMATION
  Report Type: Spontaneous
  Country: JP (occurrence: JP)
  Receive Date: 20200320
  Receipt Date: 20200320
  Transmission Date: 20200409
  Serious: Yes (Hospitalization, Other)
  Sender: FDA-Public Use
  Company Number: JP-BAYER-2020-043640

PATIENT
  Age: 69 Year
  Sex: Male
  Weight: 45.3 kg

DRUGS (4)
  1. CARBOPLATIN. [Concomitant]
     Active Substance: CARBOPLATIN
     Dosage: UNK
     Dates: start: 20200225
  2. GADOVIST [Suspect]
     Active Substance: GADOBUTROL
     Indication: MAGNETIC RESONANCE IMAGING
     Dosage: 4.6ML, ONCE
     Route: 042
     Dates: start: 20200311, end: 20200311
  3. ETOPOSIDE. [Concomitant]
     Active Substance: ETOPOSIDE
     Dosage: UNK
     Dates: start: 20200225
  4. GADOVIST [Suspect]
     Active Substance: GADOBUTROL
     Indication: LUNG NEOPLASM MALIGNANT

REACTIONS (10)
  - Anaphylactic shock [Recovered/Resolved]
  - Febrile neutropenia [None]
  - Unresponsive to stimuli [Recovered/Resolved]
  - Pulse absent [Recovered/Resolved]
  - Blood pressure decreased [Recovered/Resolved]
  - Loss of consciousness [Recovered/Resolved]
  - Oropharyngeal discomfort [Recovered/Resolved]
  - Gaze palsy [Recovered/Resolved]
  - Asthenia [Recovered/Resolved]
  - Erythema [Recovered/Resolved]

NARRATIVE: CASE EVENT DATE: 20200311
